FAERS Safety Report 7372306-8 (Version None)
Quarter: 2011Q1

REPORT INFORMATION
  Report Type: 
  Country: None (occurrence: None)
  Receive Date: 20110324
  Receipt Date: 20110317
  Transmission Date: 20110831
  Serious: Yes (Hospitalization)
  Sender: FDA-Public Use
  Company Number: B0684960A

PATIENT
  Sex: Female
  Weight: 56 kg

DRUGS (5)
  1. XELODA [Suspect]
     Dosage: 3000MG PER DAY
     Route: 048
     Dates: start: 20100531, end: 20100602
  2. BETAMETHASONE [Suspect]
     Indication: DIZZINESS
     Route: 048
     Dates: start: 20100528, end: 20101204
  3. PYDOXAL [Concomitant]
     Indication: PROPHYLAXIS
     Route: 048
     Dates: start: 20100531, end: 20100602
  4. PROMAC [Concomitant]
     Indication: PROPHYLAXIS
     Route: 048
     Dates: start: 20100825
  5. TYKERB [Suspect]
     Indication: BREAST CANCER
     Dosage: 1250MG PER DAY
     Route: 048
     Dates: start: 20100531, end: 20101114

REACTIONS (2)
  - HYPOAESTHESIA [None]
  - VERTIGO [None]
